FAERS Safety Report 21340317 (Version 1)
Quarter: 2022Q3

REPORT INFORMATION
  Report Type: Spontaneous
  Country: US (occurrence: US)
  Receive Date: 20220916
  Receipt Date: 20220916
  Transmission Date: 20221026
  Serious: Yes (Hospitalization, Other)
  Sender: FDA-Public Use
  Company Number: US-KVK-TECH, INC-20211000125

PATIENT
  Age: 57 Year
  Sex: Male
  Weight: 113.38 kg

DRUGS (5)
  1. OXYCODONE HYDROCHLORIDE [Suspect]
     Active Substance: OXYCODONE HYDROCHLORIDE
     Indication: Pain
     Dosage: UNK, TAKING FOR 12 YEARS
     Route: 065
  2. OXYCODONE HYDROCHLORIDE [Suspect]
     Active Substance: OXYCODONE HYDROCHLORIDE
     Dosage: ONE TABLET FOR EVERY 6 HOURS
     Route: 065
     Dates: start: 2010
  3. OXYCODONE HYDROCHLORIDE [Suspect]
     Active Substance: OXYCODONE HYDROCHLORIDE
     Dosage: ONE TABLET FOR EVERY 6 HOURS
     Route: 065
     Dates: start: 20211012
  4. OXYCODONE HYDROCHLORIDE [Suspect]
     Active Substance: OXYCODONE HYDROCHLORIDE
     Dosage: CUT THOSE TABLETS INTO QUARTERS AND TAKING EVERY HOUR AND A HALF OR EVERY TWO HOURS
     Route: 065
     Dates: start: 202110
  5. DIAZEPAM [Suspect]
     Active Substance: DIAZEPAM
     Indication: Hypotonia

REACTIONS (8)
  - Loss of consciousness [Recovering/Resolving]
  - Dyspnoea [Recovering/Resolving]
  - Palpitations [Recovering/Resolving]
  - Syncope [Recovering/Resolving]
  - Dizziness [Recovering/Resolving]
  - Product taste abnormal [Unknown]
  - Inappropriate schedule of product administration [Unknown]
  - Wrong technique in product usage process [Unknown]

NARRATIVE: CASE EVENT DATE: 20211001
